FAERS Safety Report 8513011-1 (Version None)
Quarter: 2012Q3

REPORT INFORMATION
  Report Type: 
  Country: None (occurrence: None)
  Receive Date: 20120705
  Receipt Date: 20120621
  Transmission Date: 20120928
  Serious: Yes (Other)
  Sender: FDA-Public Use
  Company Number: 2012-00946

PATIENT
  Age: 5 Year
  Sex: Male

DRUGS (6)
  1. ETHAMBUTOL HYDROCHLORIDE [Suspect]
     Indication: MENINGITIS TUBERCULOUS
     Dosage: 20 MG/KG (20 MG/KG,1 IN 1 D),ORAL
     Route: 048
  2. PYRAZINAMIDE [Suspect]
     Indication: MENINGITIS TUBERCULOUS
     Dosage: 25 MG/KG (25 MG/KG,1 IN 1 D),ORAL
     Route: 048
  3. PREDNISOLONE [Concomitant]
  4. PHENYTOIN [Concomitant]
  5. RIFAMPICIN [Suspect]
     Indication: MENINGITIS TUBERCULOUS
     Dosage: 10 MG/KG (10 MG/KG,1 IN 1 D),ORAL
     Route: 048
  6. ISONIAZID [Suspect]
     Indication: MENINGITIS TUBERCULOUS
     Dosage: 5 MG/KG (5 MG/KG,1 IN 1 D),ORAL
     Route: 048

REACTIONS (3)
  - OPTIC NEURITIS [None]
  - BLINDNESS [None]
  - PARADOXICAL DRUG REACTION [None]
